FAERS Safety Report 6736778-1 (Version None)
Quarter: 2010Q2

REPORT INFORMATION
  Report Type: 
  Country: None (occurrence: None)
  Receive Date: 20100521
  Receipt Date: 20100510
  Transmission Date: 20101027
  Serious: Yes (Disabling)
  Sender: FDA-Public Use
  Company Number: JP-ELI_LILLY_AND_COMPANY-JP201005001975

PATIENT
  Age: 79 Year
  Sex: Female

DRUGS (2)
  1. EVISTA [Suspect]
     Dosage: 60 MG, DAILY (1/D)
     Route: 048
     Dates: start: 20100406, end: 20100507
  2. BENET [Concomitant]
     Dosage: 17.5 MG, DAILY (1/D)
     Route: 048
     Dates: start: 20100406

REACTIONS (1)
  - VISUAL ACUITY REDUCED [None]
